FAERS Safety Report 24384131 (Version 1)
Quarter: 2024Q4

REPORT INFORMATION
  Report Type: Spontaneous
  Country: FR (occurrence: FR)
  Receive Date: 20241001
  Receipt Date: 20241001
  Transmission Date: 20250114
  Serious: Yes (Hospitalization, Other)
  Sender: AUROBINDO
  Company Number: FR-AFSSAPS-MA2024001506

PATIENT
  Age: 67 Year
  Sex: Female

DRUGS (3)
  1. ERTAPENEM [Suspect]
     Active Substance: ERTAPENEM
     Indication: Urinary tract infection
     Dosage: 0.5 GRAM, ONCE A DAY
     Route: 042
     Dates: start: 20210702, end: 20210706
  2. ERTAPENEM [Suspect]
     Active Substance: ERTAPENEM
     Dosage: 1 GRAM, ONCE A DAY
     Route: 042
     Dates: start: 20210707, end: 20210709
  3. BACLOFEN [Suspect]
     Active Substance: BACLOFEN
     Indication: Product used for unknown indication
     Dosage: 5 MILLIGRAM, TWO TIMES A DAY
     Route: 042
     Dates: start: 20210628, end: 20210709

REACTIONS (2)
  - Epilepsy [Not Recovered/Not Resolved]
  - Drug level increased [Recovered/Resolved]

NARRATIVE: CASE EVENT DATE: 20210708
